FAERS Safety Report 23054785 (Version 1)
Quarter: 2023Q4

REPORT INFORMATION
  Report Type: Report from Study
  Country: US (occurrence: US)
  Receive Date: 20231011
  Receipt Date: 20231011
  Transmission Date: 20240110
  Serious: Yes (Hospitalization)
  Sender: FDA-Public Use
  Company Number: US-ABBVIE-5443633

PATIENT
  Sex: Female

DRUGS (2)
  1. IMBRUVICA [Suspect]
     Active Substance: IBRUTINIB
     Indication: Chronic lymphocytic leukaemia
     Route: 048
     Dates: start: 2023
  2. IMBRUVICA [Suspect]
     Active Substance: IBRUTINIB
     Indication: Chronic lymphocytic leukaemia
     Route: 048
     Dates: start: 20220126, end: 2023

REACTIONS (5)
  - Food poisoning [Recovering/Resolving]
  - Pain in extremity [Recovering/Resolving]
  - Cough [Unknown]
  - Weight decreased [Unknown]
  - Pleural effusion [Unknown]

NARRATIVE: CASE EVENT DATE: 20230101
